FAERS Safety Report 10985370 (Version 1)
Quarter: 2015Q2

REPORT INFORMATION
  Report Type: Spontaneous
  Country: US (occurrence: US)
  Receive Date: 20150404
  Receipt Date: 20150404
  Transmission Date: 20150821
  Serious: No
  Sender: FDA-Public Use
  Company Number: US-SA-2014SA050661

PATIENT
  Sex: Female

DRUGS (5)
  1. MINERALS NOS/VITAMINS NOS [Concomitant]
     Dosage: TOOK EVERY OTHER DAY
  2. ALLEGRA-D [Suspect]
     Active Substance: FEXOFENADINE\PSEUDOEPHEDRINE
     Indication: PRODUCT USED FOR UNKNOWN INDICATION
     Dosage: TOOK FROM 4 DAYS
     Route: 048
     Dates: start: 201404
  3. GLUCOSAMINE [Concomitant]
     Active Substance: GLUCOSAMINE
     Dosage: TOOK EVERY OTHER DAY
  4. ASPIRIN. [Concomitant]
     Active Substance: ASPIRIN
     Dosage: TOOK EVERY OTHER DAY
  5. ALL OTHER THERAPEUTIC PRODUCTS [Concomitant]
     Active Substance: UNSPECIFIED INGREDIENT
     Dosage: TOOK EVERY OTHER DAY

REACTIONS (3)
  - Bowel movement irregularity [Unknown]
  - Muscle spasms [Unknown]
  - Gastrointestinal disorder [Unknown]

NARRATIVE: CASE EVENT DATE: 201404
